FAERS Safety Report 4868755-X (Version None)
Quarter: 2005Q4

REPORT INFORMATION
  Report Type: 
  Country: None (occurrence: None)
  Receive Date: 20051223
  Receipt Date: 20051213
  Transmission Date: 20060501
  Serious: Yes (Death)
  Sender: FDA-Public Use
  Company Number: 2005JP002400

PATIENT
  Age: 63 Year
  Sex: Male

DRUGS (14)
  1. FUNGUARD (MICAFUNGIN) INJECTION [Suspect]
     Indication: PNEUMONIA
     Dosage: 150 MG, UID/QD, IV DRIP
     Route: 041
     Dates: start: 20051102, end: 20051112
  2. MEROPEN (MEROPENEM) INJECTION [Concomitant]
  3. PAZUCROSS INJECTION [Concomitant]
  4. VANCOMYCIN HYDROCHLORIDE (VANCOMYCIN HYDROCHLORIDE) INJECTION [Concomitant]
  5. NEUART (ANTITHROMBIN III) INJECTION [Concomitant]
  6. GLOVENIN I (IMMUNOGLOBULIN HUMAN NORMAL) INJECTION [Concomitant]
  7. ALBUMIN (ALBUMIN HUMAN) INJECTION [Concomitant]
  8. REMINARON (GABEXATE MESILATE) INJECTION [Concomitant]
  9. SOLU-MEDROL [Concomitant]
  10. PREDNISOLONE SODIUM SUCCINATE (PREDNISOLONE SODIUM SUCCINATE) INJECTIO [Concomitant]
  11. INOVAN (DOPAMINE HYDROCHLORIDE) INJECTION [Concomitant]
  12. LASIX /SWE/ (FUROSEMIDE) INJECTION [Concomitant]
  13. PLASMA, FRESH FROZEN (PLASMA PROTEIN FRACTION (HUMAN)) INJECTION [Concomitant]
  14. GASTER INJECTION [Concomitant]

REACTIONS (2)
  - HEPATIC FAILURE [None]
  - WHITE BLOOD CELL COUNT INCREASED [None]
